FAERS Safety Report 8307534-8 (Version None)
Quarter: 2012Q2

REPORT INFORMATION
  Report Type: 
  Country: None (occurrence: None)
  Receive Date: 20120424
  Receipt Date: 20120419
  Transmission Date: 20120825
  Serious: Yes (Hospitalization)
  Sender: FDA-Public Use
  Company Number: JP-ABBOTT-11P-087-0705786-00

PATIENT
  Sex: Female
  Weight: 52 kg

DRUGS (6)
  1. STEROID [Concomitant]
     Indication: PRODUCT USED FOR UNKNOWN INDICATION
     Route: 048
  2. METHOTREXATE [Concomitant]
     Indication: RHEUMATOID ARTHRITIS
     Route: 048
     Dates: start: 20100423, end: 20110211
  3. PREDNISOLONE [Concomitant]
     Indication: RHEUMATOID ARTHRITIS
     Dates: start: 20100423
  4. HUMIRA [Suspect]
     Dates: start: 20100722, end: 20110202
  5. TACROLIMUS [Concomitant]
     Indication: RHEUMATOID ARTHRITIS
     Route: 048
     Dates: start: 20100423, end: 20110211
  6. HUMIRA [Suspect]
     Indication: RHEUMATOID ARTHRITIS
     Route: 058
     Dates: start: 20100423, end: 20100616

REACTIONS (7)
  - POSTOPERATIVE WOUND INFECTION [None]
  - ARTHRALGIA [None]
  - BLOOD PRESSURE DECREASED [None]
  - ADRENOCORTICAL INSUFFICIENCY ACUTE [None]
  - SEPTIC SHOCK [None]
  - INFECTION [None]
  - PYREXIA [None]
